FAERS Safety Report 9785241 (Version 5)
Quarter: 2014Q4

REPORT INFORMATION
  Report Type: Spontaneous
  Country: US (occurrence: None)
  Receive Date: 20131224
  Receipt Date: 20141224
  Transmission Date: 20150529
  Serious: Yes (Death, Hospitalization)
  Sender: FDA-Public Use
  Company Number: US-000888

PATIENT
  Age: 48 Year
  Sex: Female

DRUGS (8)
  1. BUMEX [Concomitant]
     Active Substance: BUMETANIDE
  2. ALDACTONE [Concomitant]
     Active Substance: SPIRONOLACTONE
  3. LACTULOSE. [Concomitant]
     Active Substance: LACTULOSE
  4. SOLUTIONS FOR PARENTERAL NUTRITION [Concomitant]
     Active Substance: AMINO ACIDS\DEXTROSE\ELECTROLYTES NOS
  5. GATTEX [Suspect]
     Active Substance: TEDUGLUTIDE\WATER
     Indication: SHORT-BOWEL SYNDROME
     Dosage: 0.31 ML QD, STREN/VOLUM: 0.31 [FREQU: EVERY DAY SUBCUTANEOUS)
     Route: 058
     Dates: start: 20131125, end: 20131129
  6. XIFAXAN [Concomitant]
     Active Substance: RIFAXIMIN
  7. TRAMADOL [Concomitant]
     Active Substance: TRAMADOL
  8. SYNTHROID [Concomitant]
     Active Substance: LEVOTHYROXINE SODIUM

REACTIONS (10)
  - Vomiting [None]
  - Dehydration [None]
  - Confusional state [None]
  - Drug dose omission [None]
  - Pneumonia [None]
  - Hepatic steatosis [None]
  - Renal failure [None]
  - Weight increased [None]
  - Hypersensitivity [None]
  - Cardiac arrest [None]

NARRATIVE: CASE EVENT DATE: 201311
